FAERS Safety Report 15347794 (Version 2)
Quarter: 2018Q3

REPORT INFORMATION
  Report Type: Spontaneous
  Country: US (occurrence: US)
  Receive Date: 20180904
  Receipt Date: 20180906
  Transmission Date: 20181010
  Serious: Yes (Other)
  Sender: FDA-Public Use
  Company Number: US-TARO-2018TAR00619

PATIENT
  Age: 46 Year
  Sex: Male
  Weight: 81.63 kg

DRUGS (12)
  1. WARFARIN SODIUM TABLETS USP 5MG [Suspect]
     Active Substance: WARFARIN SODIUM
     Indication: AORTIC VALVE REPLACEMENT
     Dosage: 5 MG, 1X/DAY
     Route: 048
     Dates: start: 2006, end: 2018
  2. VITAMIN E [Concomitant]
     Active Substance: .ALPHA.-TOCOPHEROL
     Dosage: UNK, 1X/DAY
     Dates: start: 2008
  3. ^AMLODEPINE 40/10MG^ [Concomitant]
     Dosage: UNK, 1X/DAY
     Dates: start: 2006
  4. PROBIOTIC [Concomitant]
     Active Substance: PROBIOTICS NOS
     Dosage: UNK, 1X/DAY
     Dates: start: 2008
  5. FISH OIL [Concomitant]
     Active Substance: FISH OIL
     Dosage: UNK, 1X/DAY
     Dates: start: 2008
  6. WARFARIN SODIUM TABLETS USP 2.5MG [Suspect]
     Active Substance: WARFARIN SODIUM
     Indication: ANTICOAGULATION DRUG LEVEL THERAPEUTIC
     Dosage: 2.5 MG, 1X/WEEK (FRIDAY)
     Route: 048
     Dates: start: 2006
  7. WARFARIN SODIUM TABLETS USP 2.5MG [Suspect]
     Active Substance: WARFARIN SODIUM
     Dosage: 5 MG, 1X/DAY
     Route: 048
     Dates: start: 2018
  8. MAGNESIUM [Concomitant]
     Active Substance: MAGNESIUM
     Dosage: UNK, 1X/DAY
     Dates: start: 2008
  9. ATENOLOL. [Concomitant]
     Active Substance: ATENOLOL
     Dosage: 25 MG, 1X/DAY
     Dates: start: 2006
  10. POTASSIUM CITRATE. [Concomitant]
     Active Substance: POTASSIUM CITRATE
     Dosage: 15 MEQ, 1X/DAY
     Dates: start: 2006
  11. OMEPRAZOLE. [Concomitant]
     Active Substance: OMEPRAZOLE
     Dosage: 40 MG, 1X/DAY
     Dates: start: 2006
  12. TUMERIC [Concomitant]
     Active Substance: HERBALS\TURMERIC
     Dosage: UNK, 1X/DAY
     Dates: start: 2008

REACTIONS (3)
  - Transient ischaemic attack [Recovered/Resolved]
  - Product quality issue [Unknown]
  - Thrombosis [Recovered/Resolved]

NARRATIVE: CASE EVENT DATE: 20180804
